FAERS Safety Report 8028150-1 (Version None)
Quarter: 2012Q1

REPORT INFORMATION
  Report Type: 
  Country: None (occurrence: None)
  Receive Date: 20120106
  Receipt Date: 20120104
  Transmission Date: 20120608
  Serious: Yes (Hospitalization)
  Sender: FDA-Public Use
  Company Number: US-B.I. PHARMACEUTICALS,INC./RIDGEFIELD-2011-BP-25850BP

PATIENT
  Sex: Female
  Weight: 66.4 kg

DRUGS (7)
  1. CALCIUM ACETATE [Concomitant]
  2. COLCHICINE [Concomitant]
     Dosage: 1.2 MG
  3. PRADAXA [Suspect]
     Indication: ATRIAL FIBRILLATION
     Dosage: 300 MG
     Route: 048
  4. DILTIAZEM HCL [Concomitant]
     Dosage: 360 MG
  5. ASPIRIN [Concomitant]
     Dosage: 81 MG
  6. BYSTOLIC [Concomitant]
     Indication: HYPERTENSION
     Route: 048
  7. LIPITOR [Concomitant]
     Indication: BLOOD CHOLESTEROL INCREASED
     Dosage: 10 MG
     Route: 048

REACTIONS (2)
  - PLEURAL EFFUSION [None]
  - PERICARDIAL HAEMORRHAGE [None]
